FAERS Safety Report 7951870-1 (Version None)
Quarter: 2011Q4

REPORT INFORMATION
  Report Type: 
  Country: None (occurrence: None)
  Receive Date: 20111201
  Receipt Date: 20111201
  Transmission Date: 20120403
  Serious: No
  Sender: FDA-Public Use
  Company Number: None

PATIENT
  Sex: Female
  Weight: 81.193 kg

DRUGS (17)
  1. PREGABALIN -LYRICA? [Concomitant]
     Route: 048
  2. LEVOTHYROXINE -SYNTHROID? [Concomitant]
     Route: 048
  3. LYRICA [Suspect]
     Indication: FIBROMYALGIA
     Dosage: 75 MG
     Route: 048
     Dates: start: 20110901, end: 20111201
  4. METFORMIN -GLUCOPHAGE? [Concomitant]
     Route: 048
  5. HYDROCODONE/APAP -VICODIN? [Concomitant]
     Route: 048
  6. DIPHENHYDRAMINE -BENADRYL? [Concomitant]
     Route: 048
  7. SODIUM CARBOXYMETHYLCELLULOSE -THERA-TEARS? [Concomitant]
     Route: 031
  8. SIMETHICONE -MYLICON?, GAS-X? [Concomitant]
  9. VITAMIN D [Concomitant]
     Route: 048
  10. CALCIUM 600 + D  -A GENERIC FOR CALTRATE? [Concomitant]
     Route: 048
  11. FUROSEMIDE -LASIX? [Concomitant]
     Route: 048
  12. METFORMIN -GLUCOPHAGE? [Concomitant]
     Route: 048
  13. LETROZOLE -FEMARA? [Concomitant]
     Route: 048
  14. LISINOPRIL -PRINAVIL?, ZESTORIL? [Concomitant]
     Route: 048
  15. ACETAMINOPHEN EXTENDED RELEASE -TYLENOL? ARTHRITIS FORMULA [Concomitant]
     Route: 048
  16. PSEUDOEPHEDRINE -SUDAFED? [Concomitant]
     Route: 048
  17. CALCIUM SENOSIDES -SENOKOT?- [Concomitant]
     Route: 048

REACTIONS (2)
  - DRY EYE [None]
  - EYE PRURITUS [None]
